FAERS Safety Report 6075986-2 (Version None)
Quarter: 2009Q1

REPORT INFORMATION
  Report Type: 
  Country: None (occurrence: None)
  Receive Date: 20090212
  Receipt Date: 20081106
  Transmission Date: 20090719
  Serious: Yes (Other)
  Sender: FDA-Public Use
  Company Number: JP-SANOFI-SYNTHELABO-A01200813672

PATIENT
  Age: 73 Year
  Sex: Female

DRUGS (3)
  1. AMARYL [Suspect]
     Indication: DIABETES MELLITUS
     Route: 048
     Dates: start: 20071028, end: 20081020
  2. PLAVIX [Suspect]
     Indication: MYOCARDIAL INFARCTION
     Dosage: UNK
     Route: 048
     Dates: start: 20071120
  3. BLOPRESS [Suspect]
     Dosage: UNK
     Route: 065
     Dates: end: 20081020

REACTIONS (1)
  - BLOOD CREATINE PHOSPHOKINASE INCREASED [None]
